FAERS Safety Report 10332856 (Version 1)
Quarter: 2014Q3

REPORT INFORMATION
  Report Type: Spontaneous
  Country: DE (occurrence: DE)
  Receive Date: 20140722
  Receipt Date: 20140722
  Transmission Date: 20150326
  Serious: Yes (Congenital Anomaly, Other)
  Sender: FDA-Public Use
  Company Number: DE-TEVA-494731GER

PATIENT
  Age: 1 Day
  Sex: Male

DRUGS (7)
  1. SEROQUEL [Suspect]
     Active Substance: QUETIAPINE FUMARATE
     Route: 064
  2. PREPIDIL GEL [Concomitant]
     Route: 064
  3. HALOPERIDOL. [Suspect]
     Active Substance: HALOPERIDOL
     Route: 064
  4. FOLSAN [Concomitant]
     Active Substance: FOLIC ACID
     Route: 064
  5. DIAZEPAM. [Concomitant]
     Active Substance: DIAZEPAM
     Route: 064
  6. ATOSIL [Concomitant]
     Active Substance: PROMETHAZINE HYDROCHLORIDE
     Route: 064
  7. WEHENCOCKTAIL [Concomitant]
     Route: 064

REACTIONS (4)
  - Cerebral calcification [Not Recovered/Not Resolved]
  - Drug withdrawal syndrome neonatal [Recovered/Resolved]
  - Foetal exposure during pregnancy [Unknown]
  - Kidney duplex [Not Recovered/Not Resolved]

NARRATIVE: CASE EVENT DATE: 20140401
